FAERS Safety Report 9243152 (Version 2)
Quarter: 2013Q2

REPORT INFORMATION
  Report Type: Spontaneous
  Country: US (occurrence: US)
  Receive Date: 20130419
  Receipt Date: 20130527
  Transmission Date: 20140414
  Serious: No
  Sender: FDA-Public Use
  Company Number: US-009507513-1304USA003979

PATIENT
  Age: 60 Year
  Sex: Male
  Weight: 212 kg

DRUGS (12)
  1. VICTRELIS [Suspect]
     Indication: CHRONIC HEPATITIS C
     Dosage: 800 MG, Q8H
     Route: 048
     Dates: start: 20130225
  2. VICTRELIS [Suspect]
     Dosage: 800 MG, TID
     Route: 048
     Dates: start: 20130307
  3. PEGASYS [Suspect]
     Indication: CHRONIC HEPATITIS C
  4. RIBAVIRIN (WARRICK) [Suspect]
     Indication: CHRONIC HEPATITIS C
     Route: 048
  5. NEUPOGEN [Concomitant]
  6. NORVASC [Concomitant]
  7. PRAMIPEXOLE [Concomitant]
  8. CALCIUM (UNSPECIFIED) [Concomitant]
  9. PREVACID [Concomitant]
  10. UBIDECARENONE [Concomitant]
  11. VITAMINS (UNSPECIFIED) [Concomitant]
  12. MILK THISTLE [Concomitant]

REACTIONS (2)
  - Fatigue [Not Recovered/Not Resolved]
  - White blood cell count decreased [Unknown]
